FAERS Safety Report 24792464 (Version 1)
Quarter: 2024Q4

REPORT INFORMATION
  Report Type: Other
  Country: JP (occurrence: JP)
  Receive Date: 20241231
  Receipt Date: 20241231
  Transmission Date: 20250114
  Serious: Yes (Other)
  Sender: CREEKWOOD PHARMACEUTICALS LLC
  Company Number: JP-Creekwood Pharmaceuticals LLC-2168087

PATIENT
  Age: 55 Year
  Sex: Female

DRUGS (3)
  1. HYDROXYCHLOROQUINE [Suspect]
     Active Substance: HYDROXYCHLOROQUINE
     Indication: Systemic lupus erythematosus
  2. CEFACLOR [Suspect]
     Active Substance: CEFACLOR
  3. MIZORIBINE [Concomitant]
     Active Substance: MIZORIBINE

REACTIONS (1)
  - Generalised pustular psoriasis [Recovered/Resolved]
